FAERS Safety Report 5606376-1 (Version None)
Quarter: 2008Q1

REPORT INFORMATION
  Report Type: 
  Country: None (occurrence: None)
  Receive Date: 20080129
  Receipt Date: 20070731
  Transmission Date: 20080703
  Serious: No
  Sender: FDA-Public Use
  Company Number: A0668172A

PATIENT
  Sex: Female

DRUGS (1)
  1. WELLBUTRIN [Suspect]
     Indication: DRUG USE FOR UNKNOWN INDICATION
     Dates: start: 20070601

REACTIONS (6)
  - AGGRESSION [None]
  - EMOTIONAL DISORDER [None]
  - INSOMNIA [None]
  - MOOD SWINGS [None]
  - PARANOIA [None]
  - SCREAMING [None]
